FAERS Safety Report 7867732-4 (Version None)
Quarter: 2011Q4

REPORT INFORMATION
  Report Type: 
  Country: None (occurrence: None)
  Receive Date: 20111028
  Receipt Date: 20111018
  Transmission Date: 20120403
  Serious: No
  Sender: FDA-Public Use
  Company Number: US-PURDUE-USA-2011-0076132

PATIENT
  Age: 80 Year
  Sex: Male

DRUGS (1)
  1. BUTRANS [Suspect]
     Indication: ANALGESIC THERAPY
     Dosage: 20 MCG/HR, DAILY
     Route: 062
     Dates: start: 20110907

REACTIONS (1)
  - DRUG INEFFECTIVE [None]
